FAERS Safety Report 13068537 (Version 2)
Quarter: 2017Q1

REPORT INFORMATION
  Report Type: Spontaneous
  Country: FR (occurrence: FR)
  Receive Date: 20161228
  Receipt Date: 20170210
  Transmission Date: 20170428
  Serious: Yes (Other)
  Sender: FDA-Public Use
  Company Number: FR-PFIZER INC-2016595569

PATIENT
  Age: 96 Year
  Sex: Female

DRUGS (1)
  1. XALATAN [Suspect]
     Active Substance: LATANOPROST

REACTIONS (3)
  - Eye pain [Unknown]
  - Erythema [Unknown]
  - Eye swelling [Unknown]

NARRATIVE: CASE EVENT DATE: 20161220
